FAERS Safety Report 14683141 (Version 1)
Quarter: 2018Q1

REPORT INFORMATION
  Report Type: Spontaneous
  Country: DE (occurrence: DE)
  Receive Date: 20180327
  Receipt Date: 20180327
  Transmission Date: 20180509
  Serious: Yes (Other)
  Sender: FDA-Public Use
  Company Number: DE-AUROBINDO-AUR-APL-2018-008546

PATIENT
  Age: 38 Year

DRUGS (5)
  1. ROPIVACAINE [Suspect]
     Active Substance: ROPIVACAINE
     Indication: EPIDURAL ANALGESIA
     Dosage: ()
     Route: 008
  2. ROPIVACAINE [Suspect]
     Active Substance: ROPIVACAINE
     Indication: EPIDURAL ANALGESIA
     Route: 008
  3. BUPIVACAINE. [Suspect]
     Active Substance: BUPIVACAINE
     Indication: EPIDURAL ANALGESIA
     Dosage: ML BUPIVACAINE 0.5 % AS TEST DOSE
     Route: 008
  4. SUFENTANIL [Suspect]
     Active Substance: SUFENTANIL
     Dosage: 10 MICROGRAM
     Route: 008
  5. SUFENTANIL [Suspect]
     Active Substance: SUFENTANIL
     Indication: EPIDURAL ANALGESIA
     Dosage: 20 ?G SUFENTANIL (=0.4 ?G/ML)
     Route: 008

REACTIONS (3)
  - Hemiparesis [Recovered/Resolved]
  - Horner^s syndrome [Recovered/Resolved]
  - Hypoglossal nerve paralysis [Recovered/Resolved]
